FAERS Safety Report 17678302 (Version 21)
Quarter: 2021Q2

REPORT INFORMATION
  Report Type: Spontaneous
  Country: CA (occurrence: CA)
  Receive Date: 20200417
  Receipt Date: 20210625
  Transmission Date: 20210716
  Serious: Yes (Other)
  Sender: FDA-Public Use
  Company Number: CA-CELLTRION INC.-2019CA026444

PATIENT

DRUGS (37)
  1. INFLECTRA [Suspect]
     Active Substance: INFLIXIMAB-DYYB
     Dosage: 400 MG 0, 2, 6 WEEKS THEN EVERY 4 WEEKS
     Route: 042
     Dates: start: 20201002, end: 20201002
  2. INFLECTRA [Suspect]
     Active Substance: INFLIXIMAB-DYYB
     Dosage: 400 MG 0, 2, 6 WEEKS THEN EVERY 4 WEEKS
     Route: 042
     Dates: start: 20201229
  3. INFLECTRA [Suspect]
     Active Substance: INFLIXIMAB-DYYB
     Dosage: 400 MG 0, 2, 6 WEEKS THEN EVERY 4 WEEKS
     Route: 042
     Dates: start: 20210420
  4. INFLECTRA [Suspect]
     Active Substance: INFLIXIMAB-DYYB
     Dosage: 400 MG 0, 2, 6 WEEKS THEN EVERY 4 WEEKS
     Route: 042
     Dates: start: 20210517
  5. VITAMIN B12 [Concomitant]
     Active Substance: CYANOCOBALAMIN
     Dosage: 1200 UG
     Route: 065
  6. INFLECTRA [Suspect]
     Active Substance: INFLIXIMAB-DYYB
     Dosage: 400 MG, 0, 2, 6 WEEKS, THEN EVERY 8 WEEKS
     Route: 042
     Dates: start: 20200220, end: 20200220
  7. INFLECTRA [Suspect]
     Active Substance: INFLIXIMAB-DYYB
     Dosage: 400 MG EVERY 0, 2, 6 WEEKS THEN EVERY 4 WEEKS
     Route: 042
     Dates: start: 20200608, end: 20200608
  8. INFLECTRA [Suspect]
     Active Substance: INFLIXIMAB-DYYB
     Dosage: 400 MG 0, 2, 6 WEEKS THEN EVERY 4 WEEKS
     Route: 042
     Dates: start: 20210223
  9. CIPRALEX [Concomitant]
     Active Substance: ESCITALOPRAM OXALATE
     Dosage: UNK
     Dates: start: 20200328
  10. VITAMIN B12 [Concomitant]
     Active Substance: CYANOCOBALAMIN
     Dosage: 1200 MCG
     Route: 065
  11. INFLECTRA [Suspect]
     Active Substance: INFLIXIMAB-DYYB
     Indication: CROHN^S DISEASE
     Dosage: 400 MG, 0, 2, 6 WEEKS, THEN EVERY 8 WEEKS
     Route: 042
     Dates: start: 20191112, end: 20191112
  12. INFLECTRA [Suspect]
     Active Substance: INFLIXIMAB-DYYB
     Dosage: 400 MG EVERY 6 WEEKS
     Route: 042
     Dates: start: 20200331, end: 20200331
  13. INFLECTRA [Suspect]
     Active Substance: INFLIXIMAB-DYYB
     Dosage: 400 MG EVERY 0, 2, 6 WEEKS THEN EVERY 4 WEEKS
     Route: 042
     Dates: start: 20200804, end: 20200804
  14. FERAMAX [Concomitant]
     Active Substance: IRON\POLYSACCHARIDES
     Indication: BLOOD IRON ABNORMAL
     Dosage: 150 MG
     Route: 065
  15. PREDNISONE. [Concomitant]
     Active Substance: PREDNISONE
     Dosage: TAPER OFF IN 3/52 5 MG AS OF 08NOV2019
     Route: 048
  16. VITAMIN C [Concomitant]
     Active Substance: ASCORBIC ACID
     Dosage: 500 MG
     Route: 065
  17. INFLECTRA [Suspect]
     Active Substance: INFLIXIMAB-DYYB
     Dosage: 400 MG 0, 2, 6 WEEKS THEN EVERY 4 WEEKS
     Route: 042
     Dates: start: 20210125
  18. INFLECTRA [Suspect]
     Active Substance: INFLIXIMAB-DYYB
     Dosage: 400 MG 0, 2, 6 WEEKS THEN EVERY 4 WEEKS
     Route: 042
     Dates: start: 20210322
  19. INFLECTRA [Suspect]
     Active Substance: INFLIXIMAB-DYYB
     Dosage: 400 MG 0, 2, 6 WEEKS THEN EVERY 4 WEEKS
     Route: 042
     Dates: start: 20210614
  20. INFLECTRA [Suspect]
     Active Substance: INFLIXIMAB-DYYB
     Dosage: 400 MG EVERY 0, 2, 6 WEEKS THEN EVERY 4 WEEKS
     Route: 042
     Dates: start: 20200706, end: 20200706
  21. INFLECTRA [Suspect]
     Active Substance: INFLIXIMAB-DYYB
     Dosage: 400 MG 0, 2, 6 WEEKS THEN EVERY 4 WEEKS
     Route: 042
     Dates: start: 20201102, end: 20201102
  22. PREDNISONE. [Concomitant]
     Active Substance: PREDNISONE
     Dosage: TAPER OFF IN 3/52 5 MG AS OF 08NOV2019
     Route: 048
     Dates: start: 20191108
  23. TECTA [Concomitant]
     Active Substance: PANTOPRAZOLE MAGNESIUM
     Indication: GASTROOESOPHAGEAL REFLUX DISEASE
     Dosage: 1 DF BID PRN
  24. VITAMIN D3 [Concomitant]
     Active Substance: CHOLECALCIFEROL
     Dosage: 3000 IU
     Route: 065
  25. POLYSPORIN TRIPLE ANTIBIOTIC [Concomitant]
     Dosage: 1 DF
     Route: 065
  26. INFLECTRA [Suspect]
     Active Substance: INFLIXIMAB-DYYB
     Dosage: 400 MG, 0, 2, 6 WEEKS, THEN EVERY 8 WEEKS
     Route: 042
     Dates: start: 20191125, end: 20191125
  27. INFLECTRA [Suspect]
     Active Substance: INFLIXIMAB-DYYB
     Dosage: 400 MG, 0, 2, 6 WEEKS, THEN EVERY 8 WEEKS
     Route: 042
     Dates: start: 20191223, end: 20191223
  28. VITAMIN C [Concomitant]
     Active Substance: ASCORBIC ACID
     Dosage: 50 MG
     Route: 065
  29. INFLECTRA [Suspect]
     Active Substance: INFLIXIMAB-DYYB
     Dosage: 400 MG 0, 2, 6 WEEKS THEN EVERY 4 WEEKS
     Route: 042
     Dates: start: 20200901, end: 20200901
  30. INFLECTRA [Suspect]
     Active Substance: INFLIXIMAB-DYYB
     Dosage: 400 MG 0, 2, 6 WEEKS THEN EVERY 4 WEEKS
     Route: 042
     Dates: start: 20201202
  31. CELEBREX [Concomitant]
     Active Substance: CELECOXIB
     Dosage: 10 MG
     Route: 065
  32. VITAMIN B NOS [Concomitant]
     Active Substance: VITAMIN B
     Dosage: UNK
     Route: 065
  33. INFLECTRA [Suspect]
     Active Substance: INFLIXIMAB-DYYB
     Dosage: 400 MG EVERY 6 WEEKS
     Route: 042
     Dates: start: 20200512, end: 20200512
  34. INFLECTRA [Suspect]
     Active Substance: INFLIXIMAB-DYYB
     Dosage: 400 MG 0, 2, 6 WEEKS THEN EVERY 4 WEEKS
     Route: 042
     Dates: start: 20200526, end: 20200526
  35. BIOTIN [Concomitant]
     Active Substance: BIOTIN
     Dosage: 10,000 MCG, FREQUENCY IS UNKNOWN
     Route: 065
  36. GAVISCON ACID BREAKTHROUGH FORMULA [Concomitant]
     Indication: GASTROOESOPHAGEAL REFLUX DISEASE
     Dosage: 1 DF, AS NEEDED
     Route: 065
  37. TYLENOL EXTRA STRENGTH [Concomitant]
     Active Substance: ACETAMINOPHEN
     Dosage: 1 DF, AS NEEDED
     Route: 065

REACTIONS (70)
  - Condition aggravated [Recovering/Resolving]
  - Intentional product use issue [Unknown]
  - Malaise [Not Recovered/Not Resolved]
  - Anorectal disorder [Unknown]
  - Oropharyngeal pain [Recovering/Resolving]
  - Rhinorrhoea [Not Recovered/Not Resolved]
  - Discomfort [Unknown]
  - Hyperhidrosis [Unknown]
  - Eczema [Unknown]
  - Epistaxis [Unknown]
  - Headache [Not Recovered/Not Resolved]
  - Sinus congestion [Not Recovered/Not Resolved]
  - Proctalgia [Unknown]
  - Dizziness [Not Recovered/Not Resolved]
  - Sleep disorder [Unknown]
  - Eructation [Not Recovered/Not Resolved]
  - Abdominal pain [Not Recovered/Not Resolved]
  - Decreased immune responsiveness [Unknown]
  - Rhinalgia [Unknown]
  - Muscle spasms [Unknown]
  - Drug level below therapeutic [Unknown]
  - Abdominal discomfort [Not Recovered/Not Resolved]
  - Pruritus [Unknown]
  - Middle insomnia [Not Recovered/Not Resolved]
  - Nausea [Not Recovered/Not Resolved]
  - Hypersomnia [Unknown]
  - Anxiety [Unknown]
  - Burning sensation [Unknown]
  - Presyncope [Recovered/Resolved]
  - Urticaria [Not Recovered/Not Resolved]
  - Fistula [Unknown]
  - Pallor [Unknown]
  - Pain [Not Recovered/Not Resolved]
  - Skin disorder [Not Recovered/Not Resolved]
  - Loss of consciousness [Unknown]
  - Therapeutic response shortened [Not Recovered/Not Resolved]
  - Off label use [Unknown]
  - Nasopharyngitis [Recovering/Resolving]
  - Asthenia [Unknown]
  - Sensation of blood flow [Unknown]
  - Acne [Unknown]
  - Ear disorder [Unknown]
  - Gastrointestinal sounds abnormal [Unknown]
  - Erythema [Unknown]
  - Anal fissure [Not Recovered/Not Resolved]
  - Abdominal distension [Unknown]
  - Hyperhidrosis [Unknown]
  - Haemorrhage [Unknown]
  - Inappropriate schedule of product administration [Unknown]
  - Diarrhoea [Recovered/Resolved]
  - Vomiting [Recovered/Resolved]
  - Sinus headache [Unknown]
  - Constipation [Not Recovered/Not Resolved]
  - Rectal spasm [Unknown]
  - Disease recurrence [Unknown]
  - Skin fissures [Unknown]
  - Fatigue [Not Recovered/Not Resolved]
  - Aphthous ulcer [Recovered/Resolved]
  - Skin irritation [Not Recovered/Not Resolved]
  - Sinusitis [Unknown]
  - Hypotension [Recovered/Resolved]
  - Cough [Recovering/Resolving]
  - Anal fissure [Not Recovered/Not Resolved]
  - Gastrooesophageal reflux disease [Not Recovered/Not Resolved]
  - Eyelids pruritus [Unknown]
  - Eyelid skin dryness [Unknown]
  - Abdominal pain lower [Unknown]
  - Alopecia [Not Recovered/Not Resolved]
  - Injury [Unknown]
  - Productive cough [Unknown]

NARRATIVE: CASE EVENT DATE: 20191112
